FAERS Safety Report 9296924 (Version 6)
Quarter: 2015Q2

REPORT INFORMATION
  Report Type: Report from Study
  Country: CA (occurrence: CA)
  Receive Date: 20130518
  Receipt Date: 20150518
  Transmission Date: 20150821
  Serious: Yes (Other)
  Sender: FDA-Public Use
  Company Number: CA-ROCHE-1157979

PATIENT
  Age: 49 Year
  Sex: Male
  Weight: 102 kg

DRUGS (15)
  1. PREDNISONE. [Concomitant]
     Active Substance: PREDNISONE
  2. ACETAMINOPHEN. [Concomitant]
     Active Substance: ACETAMINOPHEN
     Indication: PREMEDICATION
     Route: 048
     Dates: start: 20121102
  3. RITUXAN [Suspect]
     Active Substance: RITUXIMAB
     Indication: DERMATOMYOSITIS
     Dosage: ON 09/AUG/2013,RECEIVED LAST DOSE OF RITUXIMAB
     Route: 042
     Dates: start: 20121102
  4. RITUXAN [Suspect]
     Active Substance: RITUXIMAB
     Indication: OFF LABEL USE
  5. IMMUNOGLOBULIN IV [Concomitant]
     Active Substance: HUMAN IMMUNOGLOBULIN G
     Route: 065
     Dates: start: 20120912
  6. PENTOXIFYLLINE. [Concomitant]
     Active Substance: PENTOXIFYLLINE
  7. COVERSYL [Concomitant]
     Active Substance: PERINDOPRIL
  8. ACTONEL [Concomitant]
     Active Substance: RISEDRONATE SODIUM
  9. CO ETIDROCAL [Concomitant]
     Active Substance: CALCIUM CARBONATE\ETIDRONATE DISODIUM
  10. AZATHIOPRINE. [Concomitant]
     Active Substance: AZATHIOPRINE
     Route: 065
     Dates: start: 20120907
  11. FOLIC ACID. [Concomitant]
     Active Substance: FOLIC ACID
  12. NEXIUM [Concomitant]
     Active Substance: ESOMEPRAZOLE MAGNESIUM
  13. METHYLPREDNISOLONE. [Concomitant]
     Active Substance: METHYLPREDNISOLONE
     Indication: PREMEDICATION
     Route: 042
     Dates: start: 20121102
  14. SYMBICORT [Concomitant]
     Active Substance: BUDESONIDE\FORMOTEROL FUMARATE DIHYDRATE
  15. DIPHENHYDRAMINE HCL [Concomitant]
     Active Substance: DIPHENHYDRAMINE HYDROCHLORIDE
     Indication: PREMEDICATION
     Route: 048
     Dates: start: 20121102

REACTIONS (22)
  - Asthenia [Unknown]
  - Salivary gland disorder [Unknown]
  - Arthropathy [Not Recovered/Not Resolved]
  - Alanine aminotransferase increased [Recovering/Resolving]
  - Herpes zoster [Not Recovered/Not Resolved]
  - Skin ulcer [Unknown]
  - Erythema [Unknown]
  - Dermatomyositis [Unknown]
  - Rash [Recovering/Resolving]
  - Pain [Not Recovered/Not Resolved]
  - Red blood cell sedimentation rate increased [Unknown]
  - Palpitations [Recovered/Resolved]
  - Large intestine polyp [Unknown]
  - Photosensitivity reaction [Unknown]
  - Liver function test abnormal [Not Recovered/Not Resolved]
  - Swelling face [Unknown]
  - Biopsy liver abnormal [Unknown]
  - Weight increased [Unknown]
  - C-reactive protein increased [Unknown]
  - Aspartate aminotransferase increased [Recovering/Resolving]
  - Post herpetic neuralgia [Unknown]
  - Off label use [Unknown]

NARRATIVE: CASE EVENT DATE: 20121109
